FAERS Safety Report 20818843 (Version 1)
Quarter: 2022Q2

REPORT INFORMATION
  Report Type: Spontaneous
  Country: DE (occurrence: DE)
  Receive Date: 20220512
  Receipt Date: 20220512
  Transmission Date: 20220721
  Serious: Yes (Other)
  Sender: FDA-Public Use
  Company Number: None

PATIENT
  Age: 54 Year
  Sex: Female
  Weight: 90 kg

DRUGS (1)
  1. AMIODARONE [Suspect]
     Active Substance: AMIODARONE
     Indication: Arrhythmia
     Dosage: 200 MILLIGRAM DAILY; 1X 200MG/ DAY, FREQUENCY TIME : 1 DAY, DURATION : 227 DAYS,
     Route: 048
     Dates: start: 20201210, end: 20210725

REACTIONS (3)
  - Arrhythmia [Recovered/Resolved]
  - Hyperthyroidism [Recovered/Resolved]
  - Atrial fibrillation [Unknown]

NARRATIVE: CASE EVENT DATE: 20210110
